FAERS Safety Report 10246534 (Version 1)
Quarter: 2014Q2

REPORT INFORMATION
  Report Type: Spontaneous
  Country: SA (occurrence: SA)
  Receive Date: 20140619
  Receipt Date: 20140619
  Transmission Date: 20141212
  Serious: Yes (Life-Threatening)
  Sender: FDA-Public Use
  Company Number: SA-ASTRAZENECA-2014SE44672

PATIENT
  Age: 19366 Day
  Sex: Male
  Weight: 90 kg

DRUGS (6)
  1. BRILINTA [Suspect]
     Indication: PERCUTANEOUS CORONARY INTERVENTION
     Route: 048
     Dates: start: 20140612, end: 20140614
  2. STREPTOKINASE [Concomitant]
  3. LIPITOR [Concomitant]
     Indication: DYSLIPIDAEMIA
     Route: 048
     Dates: start: 20140613
  4. PROCORALAN [Concomitant]
     Indication: HEART RATE ABNORMAL
     Route: 048
     Dates: start: 20140613
  5. ROCEPHIN [Concomitant]
     Route: 042
     Dates: start: 20140613
  6. INSULIN [Concomitant]
     Route: 058
     Dates: start: 20140613

REACTIONS (5)
  - Shock [Recovered/Resolved]
  - Pulmonary oedema [Not Recovered/Not Resolved]
  - Pleural effusion [Unknown]
  - Retroperitoneal haematoma [Unknown]
  - Haematoma [Unknown]
